FAERS Safety Report 19492887 (Version 1)
Quarter: 2021Q3

REPORT INFORMATION
  Report Type: Spontaneous
  Country: US (occurrence: US)
  Receive Date: 20210705
  Receipt Date: 20210705
  Transmission Date: 20211014
  Serious: Yes (Other)
  Sender: FDA-Public Use
  Company Number: US-PFIZER INC-2021418926

PATIENT
  Age: 65 Year
  Sex: Male
  Weight: 88.45 kg

DRUGS (1)
  1. CHANTIX [Suspect]
     Active Substance: VARENICLINE TARTRATE
     Indication: SMOKING CESSATION THERAPY
     Dosage: 10 MG, 1X/DAY
     Dates: start: 201812

REACTIONS (2)
  - Overdose [Unknown]
  - Oxygen saturation decreased [Unknown]
